FAERS Safety Report 16311560 (Version 1)
Quarter: 2019Q2

REPORT INFORMATION
  Report Type: Spontaneous
  Country: US (occurrence: US)
  Receive Date: 20190514
  Receipt Date: 20190514
  Transmission Date: 20190711
  Serious: No
  Sender: FDA-Public Use
  Company Number: US-009507513-1904USA013370

PATIENT
  Age: 31 Year
  Sex: Female
  Weight: 55.78 kg

DRUGS (1)
  1. NUVARING [Suspect]
     Active Substance: ETHINYL ESTRADIOL\ETONOGESTREL
     Indication: CONTRACEPTION
     Dosage: ONE RING, ONCE EVERY THREE WEEKS
     Route: 067
     Dates: start: 20190423

REACTIONS (3)
  - Muscle spasms [Not Recovered/Not Resolved]
  - Product quality issue [Unknown]
  - Device expulsion [Unknown]

NARRATIVE: CASE EVENT DATE: 20190428
